FAERS Safety Report 5489751-8 (Version None)
Quarter: 2007Q4

REPORT INFORMATION
  Report Type: 
  Country: None (occurrence: None)
  Receive Date: 20071018
  Receipt Date: 20071010
  Transmission Date: 20080405
  Serious: Yes (Hospitalization)
  Sender: FDA-Public Use
  Company Number: DE-ABBOTT-07P-062-0420274-00

PATIENT
  Sex: Female

DRUGS (3)
  1. ERGENYL CHRONO GRANULE [Suspect]
     Indication: PETIT MAL EPILEPSY
     Route: 048
     Dates: start: 20070727, end: 20070809
  2. ERGENYL CHRONO GRANULE [Suspect]
     Route: 048
     Dates: start: 20070723, end: 20070726
  3. ERGENYL CHRONO GRANULE [Suspect]
     Dates: start: 20070720, end: 20070724

REACTIONS (7)
  - ANAEMIA [None]
  - ASCITES [None]
  - COMPLEMENT FACTOR C3 DECREASED [None]
  - GENERALISED OEDEMA [None]
  - NEPHRITIS [None]
  - PERICARDIAL EFFUSION [None]
  - PROTEINURIA [None]
